FAERS Safety Report 5662589-4 (Version None)
Quarter: 2008Q1

REPORT INFORMATION
  Report Type: 
  Country: None (occurrence: None)
  Receive Date: 20080219
  Receipt Date: 20070814
  Transmission Date: 20080703
  Serious: Yes (Other)
  Sender: FDA-Public Use
  Company Number: 2007067336

PATIENT
  Age: 86 Year
  Sex: Female

DRUGS (3)
  1. FRAGMIN [Suspect]
     Indication: THROMBOSIS PROPHYLAXIS
     Dosage: 5000 I.U., PARENTERAL
     Route: 051
     Dates: start: 20070731, end: 20070805
  2. PLAVIX [Concomitant]
  3. BABYPYRIN (ACETYLSALICYLIC ACID) [Concomitant]

REACTIONS (1)
  - CATHETER SITE HAEMORRHAGE [None]
